FAERS Safety Report 10550807 (Version 1)
Quarter: 2014Q4

REPORT INFORMATION
  Report Type: Spontaneous
  Country: US (occurrence: None)
  Receive Date: 20141028
  Receipt Date: 20141028
  Transmission Date: 20150529
  Serious: No
  Sender: FDA-Public Use
  Company Number: None

PATIENT
  Age: 74 Year
  Sex: Male
  Weight: 104.33 kg

DRUGS (1)
  1. FENOFIBRATE 54MG GLOBAL [Suspect]
     Active Substance: FENOFIBRATE
     Indication: BLOOD TRIGLYCERIDES INCREASED
     Dosage: 1 ONCE DAILY TAKEN BY MOUTH
     Route: 048
     Dates: start: 20140901, end: 20141025

REACTIONS (5)
  - Somnolence [None]
  - Chest pain [None]
  - Gastrooesophageal reflux disease [None]
  - Fatigue [None]
  - Eye irritation [None]

NARRATIVE: CASE EVENT DATE: 20141025
